FAERS Safety Report 14971089 (Version 1)
Quarter: 2018Q2

REPORT INFORMATION
  Report Type: Spontaneous
  Country: FR (occurrence: FR)
  Receive Date: 20180604
  Receipt Date: 20180604
  Transmission Date: 20180711
  Serious: Yes (Other)
  Sender: FDA-Public Use
  Company Number: FR-MYLANLABS-2018M1036075

PATIENT
  Age: 35 Year
  Sex: Female
  Weight: 52 kg

DRUGS (3)
  1. BUPIVACAINE. [Suspect]
     Active Substance: BUPIVACAINE
     Indication: CAESAREAN SECTION
     Dosage: 5 MG/ML
     Route: 024
     Dates: start: 20151009, end: 20151009
  2. MORPHINE [Concomitant]
     Active Substance: MORPHINE
     Indication: CAESAREAN SECTION
     Dosage: 100 ?G, TOTAL
     Route: 024
     Dates: start: 20151009
  3. SUFENTA [Concomitant]
     Active Substance: SUFENTANIL CITRATE
     Indication: CAESAREAN SECTION
     Dosage: 2 ?G, TOTAL
     Route: 024
     Dates: start: 20151009

REACTIONS (3)
  - No adverse event [Unknown]
  - Maternal exposure during delivery [Unknown]
  - Drug ineffective [Recovered/Resolved]

NARRATIVE: CASE EVENT DATE: 20151009
